FAERS Safety Report 4509964-9 (Version None)
Quarter: 2004Q4

REPORT INFORMATION
  Report Type: 
  Country: None (occurrence: None)
  Receive Date: 20041119
  Receipt Date: 20041101
  Transmission Date: 20050328
  Serious: Yes (Death, Other)
  Sender: FDA-Public Use
  Company Number: GBS040915527

PATIENT
  Sex: Male

DRUGS (1)
  1. PROZAC [Suspect]

REACTIONS (7)
  - OVERDOSE [None]
  - PULMONARY INFARCTION [None]
  - PULMONARY THROMBOSIS [None]
  - RASH [None]
  - SHOCK [None]
  - THERAPEUTIC RESPONSE INCREASED [None]
  - VASCULITIS [None]
